FAERS Safety Report 8518541-4 (Version None)
Quarter: 2012Q3

REPORT INFORMATION
  Report Type: 
  Country: None (occurrence: None)
  Receive Date: 20120718
  Receipt Date: 20120507
  Transmission Date: 20120928
  Serious: No
  Sender: FDA-Public Use
  Company Number: US-BRISTOL-MYERS SQUIBB COMPANY-16574832

PATIENT
  Age: 46 Year
  Sex: Female
  Weight: 85 kg

DRUGS (14)
  1. CLONAZEPAM [Concomitant]
  2. COMBIVENT [Concomitant]
  3. ACETYLSALICYLIC ACID SRT [Concomitant]
  4. ADVAIR DISKUS 100/50 [Concomitant]
  5. LASIX [Concomitant]
  6. WARFARIN SODIUM [Suspect]
     Dosage: DOSE INCREASED TO 36MG/DAY
  7. GABAPENTIN [Concomitant]
  8. POTASSIUM CHLORIDE [Concomitant]
  9. DUONEB [Concomitant]
  10. ZOLOFT [Concomitant]
  11. TRAZODONE HCL [Concomitant]
  12. PRAVASTATIN SODIUM [Concomitant]
  13. CARVEDILOL [Concomitant]
  14. OMEPRAZOLE [Concomitant]

REACTIONS (3)
  - DIARRHOEA [None]
  - CONTUSION [None]
  - INTERNATIONAL NORMALISED RATIO INCREASED [None]
